FAERS Safety Report 8759859 (Version 1)
Quarter: 2012Q4

REPORT INFORMATION
  Report Type: 
  Country: DE (occurrence: DE)
  Receive Date: 20120829
  Receipt Date: 20120829
  Transmission Date: 20130627
  Serious: Yes (Other)
  Sender: FDA-Public Use
  Company Number: DE-ASTRAZENECA-2012SE60626

PATIENT
  Age: 73 Year
  Sex: Male

DRUGS (3)
  1. SEROQUEL PROLONG [Suspect]
     Indication: DEPRESSION
     Dosage: 25 mg in the morning and 200 mg in the evening
     Route: 048
     Dates: start: 2004
  2. VENLAFAXINE [Concomitant]
  3. QUILONUM [Concomitant]

REACTIONS (1)
  - Road traffic accident [Unknown]
